FAERS Safety Report 7577201-7 (Version None)
Quarter: 2011Q2

REPORT INFORMATION
  Report Type: 
  Country: None (occurrence: None)
  Receive Date: 20110628
  Receipt Date: 20081002
  Transmission Date: 20111010
  Serious: Yes (Other)
  Sender: FDA-Public Use
  Company Number: US-BAYER-US-2007-006373

PATIENT
  Age: 55 Year
  Sex: Female
  Weight: 60 kg

DRUGS (41)
  1. NEPHROCAPS [FOLIC ACID,VITAMINS NOS] [Concomitant]
     Dosage: 1 CAP(S), 1X/DAY [DAILY DOSE: 1 CAP(S)]
     Route: 048
     Dates: start: 20050424
  2. MEDROXYPROGESTERONE ACETATE [Concomitant]
     Dosage: 2.5 MG, 1X/DAY
     Route: 048
  3. NEPHROCAPS [Concomitant]
  4. SULAR [Concomitant]
  5. ESTRATAB [Concomitant]
  6. PRILOSEC [Concomitant]
  7. MAGNEVIST [Suspect]
     Dosage: 60 ML, 1 DOSE
     Route: 042
     Dates: start: 20020524, end: 20020524
  8. DARBEPOETIN ALFA [Concomitant]
     Dosage: 40 ?G, 1X/WEEK
  9. ESTRADIOL [Concomitant]
     Dosage: 1 MG, 1X/DAY
     Route: 048
  10. EPOGEN [Concomitant]
  11. COUMADIN [Concomitant]
  12. NORVASC [Concomitant]
  13. PREDNISONE [Concomitant]
     Dosage: 5 MG, 1X/DAY
     Route: 048
  14. CALCIUM ACETATE [Concomitant]
     Dosage: 667 MG, 3X/DAY
     Route: 048
     Dates: start: 20050424, end: 20070308
  15. DOXERCALCIFEROL [Concomitant]
     Dosage: 3 ?G, 3X/WEEK
     Route: 048
  16. COZAAR [Concomitant]
  17. CYCRIN [Concomitant]
  18. RESTASIS [Concomitant]
  19. PARICALCITOL [Concomitant]
     Dosage: 5 ?G, UNK
     Route: 042
  20. FOSAMAX [Concomitant]
  21. MAGNEVIST [Suspect]
     Indication: NUCLEAR MAGNETIC RESONANCE IMAGING
     Dosage: 20 ML, 1 DOSE
     Route: 042
     Dates: start: 19930314, end: 19930314
  22. MAGNEVIST [Suspect]
     Dosage: 20 ML, 1 DOSE
     Route: 042
     Dates: start: 20060216, end: 20060216
  23. ATENOLOL [Concomitant]
  24. CISAPRIDE [Concomitant]
     Dosage: 10 MG, 1X/DAY
  25. CEFALORIDINE [Concomitant]
  26. AMLODIPINE BESYLATE [Concomitant]
     Dosage: 5 MG, 2X/DAY
     Route: 048
     Dates: start: 20070308
  27. NIFEREX [Concomitant]
  28. LEVOFLOXACIN [Concomitant]
  29. MAGNEVIST [Suspect]
     Dosage: 20 ML, 1 DOSE
     Dates: start: 19990416, end: 19990416
  30. LANTHANUM CARBONATE [Concomitant]
     Dosage: 500 MG, 3X/DAY
     Route: 048
     Dates: start: 20070308
  31. RENAGEL [Concomitant]
  32. MAGNEVIST [Suspect]
     Dosage: 60 ML, 1 DOSE
     Route: 042
     Dates: start: 20050313, end: 20050313
  33. OMEPRAZOLE [Concomitant]
  34. EPOETIN ALFA [Concomitant]
     Dosage: GIVEN DURING DIALYSIS
     Dates: start: 20050424
  35. COUMADIN [Concomitant]
     Dosage: 2.5 MG, 1X/DAY
     Route: 048
  36. SENSIPAR [Concomitant]
  37. FOSRENOL [Concomitant]
  38. PROPULSID [Concomitant]
  39. PATANOL [Concomitant]
  40. METRONIDAZOLE [Concomitant]
  41. PROGESTERONE [Concomitant]

REACTIONS (16)
  - JOINT SWELLING [None]
  - PAIN [None]
  - SKIN HYPERTROPHY [None]
  - JOINT RANGE OF MOTION DECREASED [None]
  - SKIN TIGHTNESS [None]
  - EMOTIONAL DISTRESS [None]
  - FIBROSIS [None]
  - JOINT STIFFNESS [None]
  - OEDEMA PERIPHERAL [None]
  - MUSCULOSKELETAL STIFFNESS [None]
  - SKIN FIBROSIS [None]
  - NEPHROGENIC SYSTEMIC FIBROSIS [None]
  - INJURY [None]
  - ANXIETY [None]
  - MOBILITY DECREASED [None]
  - GENERAL PHYSICAL HEALTH DETERIORATION [None]
